FAERS Safety Report 14980385 (Version 1)
Quarter: 2018Q2

REPORT INFORMATION
  Report Type: Spontaneous
  Country: US (occurrence: US)
  Receive Date: 20180606
  Receipt Date: 20180606
  Transmission Date: 20180711
  Serious: No
  Sender: FDA-Public Use
  Company Number: US-EMD SERONO-238850K07USA

PATIENT
  Sex: Female

DRUGS (1)
  1. REBIF [Suspect]
     Active Substance: INTERFERON BETA-1A
     Indication: MULTIPLE SCLEROSIS
     Route: 058
     Dates: start: 20061227, end: 20071022

REACTIONS (6)
  - Pain [Unknown]
  - Injection site induration [Unknown]
  - Injection site warmth [Unknown]
  - Hypoaesthesia [Not Recovered/Not Resolved]
  - Injection site indentation [Unknown]
  - Injection site erythema [Unknown]

NARRATIVE: CASE EVENT DATE: 2006
